FAERS Safety Report 23379473 (Version 1)
Quarter: 2024Q1

REPORT INFORMATION
  Report Type: Spontaneous
  Country: PT (occurrence: PT)
  Receive Date: 20240108
  Receipt Date: 20240108
  Transmission Date: 20240409
  Serious: Yes (Life-Threatening)
  Sender: FDA-Public Use
  Company Number: None

PATIENT
  Age: 30 Year
  Sex: Female
  Weight: 80 kg

DRUGS (1)
  1. IBUPROFEN [Suspect]
     Active Substance: IBUPROFEN
     Indication: Throat irritation
     Dosage: 400 MILLIGRAM
     Route: 048
     Dates: start: 20231218, end: 20231219

REACTIONS (4)
  - Laryngeal oedema [Recovering/Resolving]
  - Oedema mucosal [Recovering/Resolving]
  - Acute respiratory distress syndrome [Recovering/Resolving]
  - Rash [Recovering/Resolving]

NARRATIVE: CASE EVENT DATE: 20231218
